FAERS Safety Report 7841845-5 (Version None)
Quarter: 2011Q4

REPORT INFORMATION
  Report Type: 
  Country: None (occurrence: None)
  Receive Date: 20111025
  Receipt Date: 20111014
  Transmission Date: 20120403
  Serious: Yes (Hospitalization, Other)
  Sender: FDA-Public Use
  Company Number: JP-JNJFOC-20101104607

PATIENT
  Age: 65 Year
  Sex: Female
  Weight: 42 kg

DRUGS (26)
  1. REMICADE [Suspect]
     Route: 042
     Dates: start: 20090511
  2. FAMOTIDINE [Concomitant]
     Indication: PROPHYLAXIS
     Route: 048
     Dates: start: 20090420
  3. REMICADE [Suspect]
     Indication: CROHN'S DISEASE
     Route: 042
     Dates: start: 20090525
  4. ACETAMINOPHEN [Concomitant]
     Dates: start: 20100126
  5. STEROIDS NOS [Concomitant]
     Dates: start: 20091130
  6. METHYCOBAL [Concomitant]
     Indication: PROPHYLAXIS
     Dosage: DOSE: 1500 RG
     Route: 048
  7. SULFASALAZINE [Concomitant]
     Route: 048
     Dates: start: 20100427
  8. ALLEGRA [Concomitant]
     Indication: RHINITIS ALLERGIC
     Route: 048
     Dates: start: 20090508
  9. ANTIHISTAMINE [Concomitant]
     Indication: PREMEDICATION
     Dates: start: 20091130
  10. STEROIDS NOS [Concomitant]
     Indication: PREMEDICATION
     Dates: start: 20090525
  11. STEROIDS NOS [Concomitant]
     Dates: start: 20090511
  12. REMICADE [Suspect]
     Route: 042
     Dates: start: 20100126
  13. ANTIHISTAMINE [Concomitant]
     Dates: start: 20090622
  14. ANTIHISTAMINE [Concomitant]
     Dates: start: 20090525
  15. ACETAMINOPHEN [Concomitant]
     Dates: start: 20091130
  16. ACETAMINOPHEN [Concomitant]
     Dates: start: 20090511
  17. STEROIDS NOS [Concomitant]
     Dates: start: 20100126
  18. SULFASALAZINE [Concomitant]
     Indication: CROHN'S DISEASE
     Route: 048
     Dates: start: 20100119, end: 20100217
  19. REMICADE [Suspect]
     Route: 042
     Dates: start: 20090622
  20. ANTIHISTAMINE [Concomitant]
     Dates: start: 20100126
  21. ACETAMINOPHEN [Concomitant]
     Indication: PREMEDICATION
     Dates: start: 20090622
  22. ACETAMINOPHEN [Concomitant]
     Dates: start: 20090525
  23. STEROIDS NOS [Concomitant]
     Dates: start: 20090622
  24. ANTIHISTAMINE [Concomitant]
     Dates: start: 20090511
  25. PREDNISOLONE [Concomitant]
     Indication: CROHN'S DISEASE
     Route: 048
     Dates: start: 20100119, end: 20100214
  26. REMICADE [Suspect]
     Route: 042
     Dates: start: 20091130

REACTIONS (2)
  - SUBILEUS [None]
  - ARTHRITIS [None]
